FAERS Safety Report 7958190-X (Version None)
Quarter: 2011Q4

REPORT INFORMATION
  Report Type: 
  Country: None (occurrence: None)
  Receive Date: 20111205
  Receipt Date: 20111130
  Transmission Date: 20120403
  Serious: Yes (Hospitalization)
  Sender: FDA-Public Use
  Company Number: JP-ABBOTT-11P-087-0879625-00

PATIENT
  Sex: Male

DRUGS (2)
  1. CIPRALAN [Interacting]
     Indication: ARRHYTHMIA
  2. CLARITHROMYCIN [Suspect]
     Indication: NASOPHARYNGITIS

REACTIONS (2)
  - DRUG INTERACTION [None]
  - HYPOGLYCAEMIA [None]
